FAERS Safety Report 17824679 (Version 1)
Quarter: 2020Q2

REPORT INFORMATION
  Report Type: Report from Study
  Country: CA (occurrence: CA)
  Receive Date: 20200526
  Receipt Date: 20200526
  Transmission Date: 20200714
  Serious: Yes (Other)
  Sender: FDA-Public Use
  Company Number: PHHY2013CA037547

PATIENT
  Age: 72 Year
  Sex: Female

DRUGS (10)
  1. EXJADE [Suspect]
     Active Substance: DEFERASIROX
     Dosage: 2000 MG
     Route: 048
     Dates: start: 20130412
  2. EXJADE [Suspect]
     Active Substance: DEFERASIROX
     Dosage: UNK
     Route: 048
     Dates: start: 20171109
  3. EXJADE [Suspect]
     Active Substance: DEFERASIROX
     Dosage: 1250 MG, QD (STRENGTH: 500 + 125 MG)
     Route: 048
  4. EXJADE [Suspect]
     Active Substance: DEFERASIROX
     Dosage: 2000 MG, QD (STRENGTH: 500 MG )
     Route: 048
     Dates: start: 20190912
  5. SULFASALAZINE. [Concomitant]
     Active Substance: SULFASALAZINE
     Indication: PRODUCT USED FOR UNKNOWN INDICATION
     Dosage: UNK
     Route: 065
  6. EXJADE [Suspect]
     Active Substance: DEFERASIROX
     Indication: MYELODYSPLASTIC SYNDROME
     Dosage: 1000 MG, QD
     Route: 048
  7. EXJADE [Suspect]
     Active Substance: DEFERASIROX
     Dosage: 2500 MG, QD (IN FEB)
     Route: 048
  8. PREVACID [Concomitant]
     Active Substance: LANSOPRAZOLE
     Indication: PRODUCT USED FOR UNKNOWN INDICATION
     Dosage: UNK
     Route: 065
  9. THYROXINE [Concomitant]
     Active Substance: LEVOTHYROXINE
     Indication: PRODUCT USED FOR UNKNOWN INDICATION
     Dosage: UNK
     Route: 065
  10. EXJADE [Suspect]
     Active Substance: DEFERASIROX
     Dosage: 1125 MG, QD
     Route: 048
     Dates: start: 20130412

REACTIONS (16)
  - Cataract [Unknown]
  - Faecal volume increased [Unknown]
  - Eye pain [Unknown]
  - Decreased appetite [Unknown]
  - Headache [Unknown]
  - Abnormal faeces [Unknown]
  - Skin disorder [Unknown]
  - Intestinal obstruction [Unknown]
  - Serum ferritin increased [Unknown]
  - Nausea [Unknown]
  - Strangulated hernia [Unknown]
  - Haemoglobin decreased [Unknown]
  - Feeding disorder [Unknown]
  - Cold sweat [Recovered/Resolved]
  - Arthritis [Unknown]
  - Weight decreased [Unknown]

NARRATIVE: CASE EVENT DATE: 20130415
